FAERS Safety Report 12094032 (Version 1)
Quarter: 2016Q1

REPORT INFORMATION
  Report Type: Spontaneous
  Country: US (occurrence: US)
  Receive Date: 20160219
  Receipt Date: 20160219
  Transmission Date: 20160526
  Serious: Yes (Hospitalization)
  Sender: FDA-Public Use
  Company Number: US-TEVA-635847USA

PATIENT
  Age: 62 Year
  Sex: Male
  Weight: 106.69 kg

DRUGS (11)
  1. FLECTOR [Concomitant]
     Active Substance: DICLOFENAC EPOLAMINE
  2. FENTANYL. [Concomitant]
     Active Substance: FENTANYL
  3. MATZIM [Concomitant]
     Active Substance: DILTIAZEM
     Indication: ELECTROCARDIOGRAM QT INTERVAL ABNORMAL
     Dates: start: 201503
  4. OXYCONTIN [Concomitant]
     Active Substance: OXYCODONE HYDROCHLORIDE
     Indication: PAIN
  5. SENOKOT [Concomitant]
     Active Substance: SENNOSIDES
  6. AMITRIPTYLINE [Concomitant]
     Active Substance: AMITRIPTYLINE
  7. OMEPRAZOLE. [Concomitant]
     Active Substance: OMEPRAZOLE
  8. ACTIQ [Suspect]
     Active Substance: FENTANYL CITRATE
     Indication: PAIN
     Dosage: 7200 MILLIGRAM DAILY;
     Route: 065
     Dates: start: 2003
  9. NEURONTIN [Concomitant]
     Active Substance: GABAPENTIN
     Indication: PAIN
  10. METHADONE [Suspect]
     Active Substance: METHADONE HYDROCHLORIDE
     Route: 065
  11. ACTIQ [Suspect]
     Active Substance: FENTANYL CITRATE
     Dosage: 1200 MILLIGRAM DAILY; AT NIGHT
     Route: 065
     Dates: start: 201504

REACTIONS (5)
  - Product use issue [Unknown]
  - Stress [Unknown]
  - Electrocardiogram QT interval abnormal [Unknown]
  - Pain [Unknown]
  - Anxiety [Unknown]

NARRATIVE: CASE EVENT DATE: 201503
